FAERS Safety Report 6632677-4 (Version None)
Quarter: 2010Q1

REPORT INFORMATION
  Report Type: 
  Country: None (occurrence: None)
  Receive Date: 20100312
  Receipt Date: 20100301
  Transmission Date: 20100710
  Serious: Yes (Hospitalization)
  Sender: FDA-Public Use
  Company Number: FR-ELI_LILLY_AND_COMPANY-FR201003000395

PATIENT
  Sex: Female
  Weight: 58 kg

DRUGS (5)
  1. BYETTA [Suspect]
     Indication: TYPE 2 DIABETES MELLITUS
     Dosage: 10 UG, 2/D
     Route: 058
     Dates: start: 20090401, end: 20100116
  2. GLUCOPHAGE [Concomitant]
     Dosage: 1000 MG, 3/D
     Route: 048
     Dates: start: 20010101, end: 20100116
  3. EXFORGE /01634301/ [Concomitant]
     Dosage: 5 MG, DAILY (1/D)
     Dates: end: 20100116
  4. EXFORGE /01634301/ [Concomitant]
     Dosage: 160 MG, DAILY (1/D)
     Dates: end: 20100116
  5. TAHOR [Concomitant]
     Dosage: 10 MG, DAILY (1/D)

REACTIONS (1)
  - PANCREATITIS ACUTE [None]
